FAERS Safety Report 18211770 (Version 1)
Quarter: 2020Q3

REPORT INFORMATION
  Report Type: Spontaneous
  Country: DE (occurrence: DE)
  Receive Date: 20200831
  Receipt Date: 20200831
  Transmission Date: 20201103
  Serious: Yes (Hospitalization, Other)
  Sender: FDA-Public Use
  Company Number: DE-009507513-2008DEU012728

PATIENT
  Age: 25 Year
  Sex: Female
  Weight: 63 kg

DRUGS (4)
  1. MIRTAZAPINE. [Suspect]
     Active Substance: MIRTAZAPINE
     Dosage: 15 MG, 0?0?0?0.5
     Route: 048
  2. PIPAMPERONE [Suspect]
     Active Substance: PIPAMPERONE
     Dosage: 40 MG, NEED
     Route: 048
  3. PAROXETINE. [Suspect]
     Active Substance: PAROXETINE
     Dosage: 20 MG, 1.5?1?0?0
     Route: 048
  4. ZIPRASIDONE. [Suspect]
     Active Substance: ZIPRASIDONE
     Dosage: 20 MG, 2?0?4?0
     Route: 048

REACTIONS (5)
  - Decreased appetite [Unknown]
  - Product administration error [Unknown]
  - Depressed mood [Unknown]
  - Insomnia [Unknown]
  - Hallucination, auditory [Unknown]
